FAERS Safety Report 22197756 (Version 1)
Quarter: 2023Q2

REPORT INFORMATION
  Report Type: Spontaneous
  Country: US (occurrence: US)
  Receive Date: 20230411
  Receipt Date: 20230411
  Transmission Date: 20230721
  Serious: Yes (Hospitalization)
  Sender: FDA-Public Use
  Company Number: US-CHEMOCENTRYX, INC.-2023USCCXI0975

PATIENT

DRUGS (2)
  1. TAVNEOS [Suspect]
     Active Substance: AVACOPAN
     Indication: Microscopic polyangiitis
     Dosage: 60 MG, 1X/DAY
     Route: 048
     Dates: start: 20230302, end: 202303
  2. TAVNEOS [Suspect]
     Active Substance: AVACOPAN
     Dosage: 60 MG, 1X/DAY
     Route: 048
     Dates: start: 20230324

REACTIONS (9)
  - Gastrointestinal scarring [Unknown]
  - Pain [Unknown]
  - Vomiting [Unknown]
  - Abdominal pain upper [Unknown]
  - Unevaluable event [Recovered/Resolved]
  - Blood glucose increased [Unknown]
  - Hypophagia [Recovered/Resolved]
  - Constipation [Unknown]
  - Hypertension [Unknown]

NARRATIVE: CASE EVENT DATE: 20230319
